FAERS Safety Report 17219279 (Version 1)
Quarter: 2019Q4

REPORT INFORMATION
  Report Type: Spontaneous
  Country: FR (occurrence: FR)
  Receive Date: 20191231
  Receipt Date: 20191231
  Transmission Date: 20200122
  Serious: Yes (Hospitalization)
  Sender: FDA-Public Use
  Company Number: FR-SA-2019SA359251

PATIENT
  Age: 80 Year
  Sex: Male
  Weight: 80 kg

DRUGS (2)
  1. SULFAMETHOXAZOLE/TRIMETHOPRIM [Suspect]
     Active Substance: SULFAMETHOXAZOLE\TRIMETHOPRIM
     Indication: ENDOCARDITIS STAPHYLOCOCCAL
     Dosage: 4 DF, QD
     Route: 048
     Dates: start: 20191107, end: 20191210
  2. RIFADINE [Suspect]
     Active Substance: RIFAMPIN
     Indication: ENDOCARDITIS STAPHYLOCOCCAL
     Dosage: 900 MG, QD
     Route: 048
     Dates: start: 20191107

REACTIONS (1)
  - Purpura [Not Recovered/Not Resolved]

NARRATIVE: CASE EVENT DATE: 20191203
